FAERS Safety Report 7452039-X (Version None)
Quarter: 2011Q2

REPORT INFORMATION
  Report Type: 
  Country: None (occurrence: None)
  Receive Date: 20110425
  Receipt Date: 20110418
  Transmission Date: 20111010
  Serious: Yes (Other)
  Sender: FDA-Public Use
  Company Number: ACO_23407_2011

PATIENT
  Age: 62 Year
  Sex: Female
  Weight: 74.8 kg

DRUGS (14)
  1. AMANTADINE HCL [Concomitant]
  2. AMPYRA [Suspect]
     Indication: GAIT DISTURBANCE
     Dosage: 10 MG, BID, ORAL
     Route: 048
     Dates: start: 20110404, end: 20110409
  3. PROPRANOLOL [Concomitant]
  4. XANAX [Concomitant]
  5. ZANAFLEX [Suspect]
     Indication: PRODUCT USED FOR UNKNOWN INDICATION
  6. ZOLOFT [Concomitant]
  7. LASIC (FUROSEMIDE) [Concomitant]
  8. VITAMIN B-COMPLEX (ASCORBIC ACID, CALCIUM PANTOTHENATE, CYANOCOBALAMIN [Concomitant]
  9. MIDODRINE HYDROCHLORIDE [Concomitant]
  10. MAGNESIUM (MAGNESIUM) [Concomitant]
  11. VITAMIN D (ERGOCALCIEROL) [Concomitant]
  12. MULTIVITAMIN [Concomitant]
  13. DISOPYRAMIDE [Concomitant]
  14. ASPIRIN [Concomitant]

REACTIONS (11)
  - EXERCISE TOLERANCE DECREASED [None]
  - LOSS OF CONSCIOUSNESS [None]
  - TONGUE BITING [None]
  - FATIGUE [None]
  - BLOOD PRESSURE SYSTOLIC INCREASED [None]
  - MEMORY IMPAIRMENT [None]
  - FALL [None]
  - CONVULSION [None]
  - MALAISE [None]
  - URINARY TRACT INFECTION [None]
  - DYSKINESIA [None]
